FAERS Safety Report 17605111 (Version 1)
Quarter: 2020Q1

REPORT INFORMATION
  Report Type: Spontaneous
  Country: US (occurrence: US)
  Receive Date: 20200331
  Receipt Date: 20200331
  Transmission Date: 20200409
  Serious: Yes (Hospitalization)
  Sender: FDA-Public Use
  Company Number: US-PROCTER_AND_GAMBLE-GS20035097

PATIENT
  Age: 54 Year
  Sex: Female

DRUGS (1)
  1. METAMUCIL THERAPY FOR REGULARITY [Suspect]
     Active Substance: PSYLLIUM HUSK
     Indication: CONSTIPATION
     Dosage: 2T IN ORANGE JUICE ONCE PER DAY IN THE MORNING
     Route: 048
     Dates: start: 20200220, end: 20200318

REACTIONS (3)
  - Incorrect dose administered [Unknown]
  - Haematochezia [Recovered/Resolved]
  - Gastrointestinal ulcer [Unknown]

NARRATIVE: CASE EVENT DATE: 20200220
